FAERS Safety Report 10173735 (Version 1)
Quarter: 2014Q2

REPORT INFORMATION
  Report Type: Spontaneous
  Country: GR (occurrence: GR)
  Receive Date: 20140515
  Receipt Date: 20140515
  Transmission Date: 20141212
  Serious: Yes (Other)
  Sender: FDA-Public Use
  Company Number: GR-PFIZER INC-2014128733

PATIENT
  Age: 42 Year
  Sex: Male

DRUGS (6)
  1. CABERGOLINE [Suspect]
     Indication: PROLACTINOMA
     Dosage: 1.5 MG, WEEKLY
  2. CABERGOLINE [Suspect]
     Dosage: 2.5 MG, WEEKLY
  3. CABERGOLINE [Suspect]
     Dosage: 3.5 MG, WEEKLY
  4. HYDROCORTISONE SODIUM SUCCINATE [Concomitant]
     Dosage: 20 MG, DAILY
  5. THYROXINE [Concomitant]
     Dosage: 100 MICROGRAMS, DAILY
  6. TESTOSTERONE [Concomitant]
     Dosage: UNK
     Route: 030

REACTIONS (4)
  - Visual field defect [Recovered/Resolved with Sequelae]
  - Optic nerve injury [Recovered/Resolved]
  - Brain herniation [Recovered/Resolved]
  - Central nervous system infection [Recovered/Resolved]
